FAERS Safety Report 10530772 (Version 1)
Quarter: 2014Q4

REPORT INFORMATION
  Report Type: Spontaneous
  Country: US (occurrence: None)
  Receive Date: 20141020
  Receipt Date: 20141020
  Transmission Date: 20150528
  Serious: No
  Sender: FDA-Public Use
  Company Number: None

PATIENT
  Sex: Male

DRUGS (38)
  1. CLOTAMIZOLE [Concomitant]
  2. BIFALUTAMIDE [Concomitant]
  3. BILALUIAMIDE [Concomitant]
  4. HYDROCODONE [Concomitant]
     Active Substance: HYDROCODONE
  5. D-PEN NDL SMAT [Concomitant]
  6. SOTALOL. [Concomitant]
     Active Substance: SOTALOL
  7. CARVEDILOL. [Concomitant]
     Active Substance: CARVEDILOL
  8. DILTIAZEM [Concomitant]
     Active Substance: DILTIAZEM
  9. GLUMEPIRIDE [Concomitant]
  10. SPIRONOLACTONE. [Concomitant]
     Active Substance: SPIRONOLACTONE
  11. ZYTIGA [Suspect]
     Active Substance: ABIRATERONE ACETATE
     Indication: PROSTATE CANCER
     Route: 048
     Dates: start: 20140626
  12. GEMFIBROZIL. [Concomitant]
     Active Substance: GEMFIBROZIL
  13. BISOLITAMIDE [Concomitant]
  14. PREDNISONE. [Concomitant]
     Active Substance: PREDNISONE
  15. CLOTRIMAZOLE. [Concomitant]
     Active Substance: CLOTRIMAZOLE
  16. GABAPENTIN. [Concomitant]
     Active Substance: GABAPENTIN
  17. CARVEDILOL. [Concomitant]
     Active Substance: CARVEDILOL
  18. LEVEMIR [Concomitant]
     Active Substance: INSULIN DETEMIR
  19. LOVASTATIN. [Concomitant]
     Active Substance: LOVASTATIN
  20. GABAPENTIN. [Concomitant]
     Active Substance: GABAPENTIN
  21. SPIRONOLACTONE. [Concomitant]
     Active Substance: SPIRONOLACTONE
  22. GLIMEPIRIDE. [Concomitant]
     Active Substance: GLIMEPIRIDE
  23. GLIMEPAMIDE [Concomitant]
  24. TRIPLE ANTIBIOTIC [Concomitant]
     Active Substance: BACITRACIN ZINC\NEOMYCIN\NEOMYCIN SULFATE\POLYMYXIN B SULFATE
  25. CEPHALON [Concomitant]
  26. LOVASTATIN. [Concomitant]
     Active Substance: LOVASTATIN
  27. LAMIPERIDE [Concomitant]
  28. SPIRONOLACTONE. [Concomitant]
     Active Substance: SPIRONOLACTONE
  29. LEVEMIR [Concomitant]
     Active Substance: INSULIN DETEMIR
  30. ELIQUIS [Concomitant]
     Active Substance: APIXABAN
  31. GABAPENTIN. [Concomitant]
     Active Substance: GABAPENTIN
  32. GLIMEPIRIDE. [Concomitant]
     Active Substance: GLIMEPIRIDE
  33. BICALUTAMIDE. [Concomitant]
     Active Substance: BICALUTAMIDE
  34. DILTIAZEM [Concomitant]
     Active Substance: DILTIAZEM
  35. ELIQUIS [Concomitant]
     Active Substance: APIXABAN
  36. BIO PEN NDL SMART [Concomitant]
  37. SOTALOL. [Concomitant]
     Active Substance: SOTALOL
  38. ZYTIGA [Concomitant]
     Active Substance: ABIRATERONE ACETATE

REACTIONS (1)
  - Drug ineffective [None]
